FAERS Safety Report 6535851-0 (Version None)
Quarter: 2010Q1

REPORT INFORMATION
  Report Type: 
  Country: None (occurrence: None)
  Receive Date: 20100113
  Receipt Date: 20100105
  Transmission Date: 20100710
  Serious: No
  Sender: FDA-Public Use
  Company Number: US-B.I. PHARMACEUTICALS,INC./RIDGEFIELD-2009-BP-14397BP

PATIENT
  Age: 66 Year
  Sex: Male

DRUGS (6)
  1. FLOMAX [Suspect]
     Indication: PROSTATITIS
     Dosage: 0.4 MG
     Route: 048
     Dates: start: 20091208, end: 20091208
  2. FLOMAX [Suspect]
     Indication: URINARY TRACT INFECTION
  3. METOPROLOL [Concomitant]
     Dosage: 50 MG
     Route: 048
  4. TIMOLOL MALEATE [Concomitant]
     Route: 048
  5. PLAVIX [Concomitant]
     Dosage: 75 MG
     Route: 048
  6. ASPIRIN [Concomitant]
     Dosage: 162 MG
     Route: 048

REACTIONS (1)
  - PALPITATIONS [None]
